FAERS Safety Report 24529879 (Version 1)
Quarter: 2024Q4

REPORT INFORMATION
  Report Type: Spontaneous
  Country: US (occurrence: US)
  Receive Date: 20241021
  Receipt Date: 20241021
  Transmission Date: 20250115
  Serious: Yes (Hospitalization)
  Sender: FRESENIUS KABI
  Company Number: US-FreseniusKabi-FK202415516

PATIENT
  Age: 63 Year
  Sex: Female

DRUGS (2)
  1. LEVOTHYROXINE [Suspect]
     Active Substance: LEVOTHYROXINE
     Indication: Hyperthyroidism
     Dosage: FORM OF ADMINISTRATION: INJECTION?THERAPY END DATE: UNKNOWN DATE APPROX. 2 MONTHS AGO?DOSAGE: 200 MC
     Route: 030
     Dates: start: 202312, end: 2024
  2. LEVOTHYROXINE [Suspect]
     Active Substance: LEVOTHYROXINE
     Indication: Hyperthyroidism
     Dosage: TABLET?THERAPY START DATE: UNKNOWN DATE 10-15 YEARS AGO?THERAPY ONGOING
     Route: 048

REACTIONS (3)
  - Palpitations [Recovering/Resolving]
  - Off label use [Unknown]
  - Malaise [Not Recovered/Not Resolved]

NARRATIVE: CASE EVENT DATE: 20231201
